FAERS Safety Report 5651346-0 (Version None)
Quarter: 2008Q1

REPORT INFORMATION
  Report Type: 
  Country: None (occurrence: None)
  Receive Date: 20080305
  Receipt Date: 20080227
  Transmission Date: 20080703
  Serious: Yes (Other)
  Sender: FDA-Public Use
  Company Number: US-GILEAD-2008-0014778

PATIENT
  Sex: Male
  Weight: 86.26 kg

DRUGS (10)
  1. LETAIRIS [Suspect]
     Indication: PULMONARY HYPERTENSION
     Route: 048
     Dates: start: 20070907, end: 20071025
  2. OXYGEN [Concomitant]
     Indication: PULMONARY HYPERTENSION
     Route: 045
  3. VIAGRA [Concomitant]
     Indication: PULMONARY HYPERTENSION
     Route: 048
  4. LASIX [Concomitant]
     Indication: PULMONARY HYPERTENSION
     Route: 048
  5. DIGOXIN [Concomitant]
     Indication: ESSENTIAL HYPERTENSION
     Route: 048
  6. K-DUR 10 [Concomitant]
     Indication: SUPPLEMENTATION THERAPY
     Route: 048
  7. WARFARIN SODIUM [Concomitant]
     Indication: ANTICOAGULANT THERAPY
     Route: 048
  8. WARFARIN SODIUM [Concomitant]
     Route: 048
  9. TEMAZEPAM [Concomitant]
     Indication: DEPRESSION
     Dosage: 15-30
  10. ADVAIR DISKUS 100/50 [Concomitant]
     Indication: ASTHMA
     Route: 055

REACTIONS (1)
  - LIVER FUNCTION TEST ABNORMAL [None]
